FAERS Safety Report 22279336 (Version 2)
Quarter: 2023Q2

REPORT INFORMATION
  Report Type: Report from Study
  Country: CN (occurrence: CN)
  Receive Date: 20230503
  Receipt Date: 20230510
  Transmission Date: 20230721
  Serious: Yes (Hospitalization)
  Sender: FDA-Public Use
  Company Number: CN-BoehringerIngelheim-2023-BI-233781

PATIENT
  Age: 58 Year
  Sex: Female
  Weight: 56 kg

DRUGS (5)
  1. NINTEDANIB [Suspect]
     Active Substance: NINTEDANIB
     Indication: Interstitial lung disease
     Route: 048
     Dates: start: 20220422
  2. PREDNISONE ACETATE [Concomitant]
     Active Substance: PREDNISONE ACETATE
     Indication: Interstitial lung disease
     Route: 048
     Dates: start: 20220220
  3. ACETYLCYSTEINE TABLETS [Concomitant]
     Indication: Interstitial lung disease
     Route: 048
     Dates: start: 20200716
  4. LANSOPRAZOLE ENTERIC-COATED TABLETS [Concomitant]
     Indication: Prophylaxis
     Dosage: 2 TABLETS
     Route: 048
     Dates: start: 20220220
  5. Calcium carbonate D3 tablets [Concomitant]
     Indication: Prophylaxis
     Dosage: 1 TABLET
     Route: 048
     Dates: start: 20211101

REACTIONS (1)
  - Urinary tract infection [Recovered/Resolved]

NARRATIVE: CASE EVENT DATE: 20230328
